FAERS Safety Report 9450205 (Version 1)
Quarter: 2013Q3

REPORT INFORMATION
  Report Type: Report from Study
  Country: CO (occurrence: CO)
  Receive Date: 20130809
  Receipt Date: 20130809
  Transmission Date: 20140515
  Serious: Yes (Other)
  Sender: FDA-Public Use
  Company Number: CO-BAYER-2013-093037

PATIENT
  Age: 74 Year
  Sex: Male
  Weight: 72 kg

DRUGS (2)
  1. NEXAVAR [Suspect]
     Indication: HEPATOCELLULAR CARCINOMA
     Dosage: 200 MG 2 TAB/DAY
     Route: 048
     Dates: start: 20130711, end: 20130725
  2. NEXAVAR [Suspect]
     Indication: HEPATOCELLULAR CARCINOMA
     Dosage: 200 MG, 1TAB PER DAY
     Route: 048
     Dates: start: 20130729

REACTIONS (2)
  - Epistaxis [Recovered/Resolved]
  - Skin ulcer [Recovered/Resolved]
